FAERS Safety Report 4339355-5 (Version None)
Quarter: 2004Q2

REPORT INFORMATION
  Report Type: 
  Country: None (occurrence: None)
  Receive Date: 20040412
  Receipt Date: 20040331
  Transmission Date: 20050107
  Serious: Yes (Hospitalization)
  Sender: FDA-Public Use
  Company Number: 2004UW06607

PATIENT
  Sex: Male

DRUGS (3)
  1. CRESTOR [Suspect]
     Dosage: 10 MG DAILY PO
     Route: 048
  2. DIURETIC [Concomitant]
  3. HMG-COA REDUCTASE AGENT [Concomitant]

REACTIONS (10)
  - CONFUSIONAL STATE [None]
  - DEHYDRATION [None]
  - DRUG HYPERSENSITIVITY [None]
  - EXCESSIVE EXERCISE [None]
  - HYPOTENSION [None]
  - HYPOXIA [None]
  - RENAL FAILURE ACUTE [None]
  - RHABDOMYOLYSIS [None]
  - SOMNOLENCE [None]
  - TOXICOLOGIC TEST ABNORMAL [None]
